FAERS Safety Report 9129150 (Version 1)
Quarter: 2013Q1

REPORT INFORMATION
  Report Type: Spontaneous
  Country: CA (occurrence: CA)
  Receive Date: 20130125
  Receipt Date: 20130125
  Transmission Date: 20140127
  Serious: Yes (Hospitalization)
  Sender: FDA-Public Use
  Company Number: CA-ROCHE-1182431

PATIENT
  Age: 54 Year
  Sex: Male
  Weight: 115 kg

DRUGS (8)
  1. PEGASYS [Suspect]
     Indication: PRODUCT USED FOR UNKNOWN INDICATION
     Dosage: PRE FILLED SYRINGE
     Route: 058
  2. PEGASYS [Suspect]
     Route: 048
  3. PEGASYS [Suspect]
     Route: 048
  4. CITALOPRAM [Concomitant]
     Route: 065
  5. HCTZ [Concomitant]
     Route: 065
  6. LORAZEPAM [Concomitant]
     Route: 065
  7. NIFEDIPINE [Concomitant]
     Route: 065
  8. OLANZAPINE [Concomitant]
     Route: 065

REACTIONS (3)
  - Hallucination, auditory [Recovered/Resolved]
  - Hallucination, visual [Recovered/Resolved]
  - Paranoia [Recovered/Resolved]
